FAERS Safety Report 18402766 (Version 1)
Quarter: 2020Q4

REPORT INFORMATION
  Report Type: Spontaneous
  Country: US (occurrence: US)
  Receive Date: 20201016
  Receipt Date: 20201016
  Transmission Date: 20210114
  Serious: Yes (Death, Life-Threatening)
  Sender: FDA-Public Use
  Company Number: None

PATIENT
  Age: 59 Year
  Sex: Female
  Weight: 68.04 kg

DRUGS (3)
  1. DILAUDID [Suspect]
     Active Substance: HYDROMORPHONE HYDROCHLORIDE
  2. ATIVAN [Suspect]
     Active Substance: LORAZEPAM
  3. HALOPERIDOL. [Suspect]
     Active Substance: HALOPERIDOL
     Indication: PRODUCT USED FOR UNKNOWN INDICATION
     Dosage: ?          QUANTITY:2.5 MG MILLIGRAM(S);?
     Route: 042
     Dates: start: 20150213, end: 20150220

REACTIONS (9)
  - Pneumonia [None]
  - Hypotension [None]
  - Incorrect route of product administration [None]
  - Somnolence [None]
  - Discomfort [None]
  - Respiratory rate decreased [None]
  - Incorrect product administration duration [None]
  - Respiratory failure [None]
  - Wrong product administered [None]

NARRATIVE: CASE EVENT DATE: 20150213
